FAERS Safety Report 5356198-4 (Version None)
Quarter: 2007Q2

REPORT INFORMATION
  Report Type: 
  Country: None (occurrence: None)
  Receive Date: 20070612
  Receipt Date: 20070531
  Transmission Date: 20071010
  Serious: Yes (Other)
  Sender: FDA-Public Use
  Company Number: US-PFIZER INC-2007046074

PATIENT
  Sex: Female
  Weight: 54.4 kg

DRUGS (6)
  1. CHANTIX [Suspect]
     Indication: EX-SMOKER
     Dosage: FREQ:EVERY DAY
     Dates: start: 20070522, end: 20070531
  2. POTASSIUM CHLORIDE [Concomitant]
  3. MAXZIDE [Concomitant]
  4. LOVASTATIN [Concomitant]
     Dosage: DAILY DOSE:60MG
  5. AMITRIPTYLINE HCL [Concomitant]
     Dosage: TEXT:20 TO 30MG EVERY NIGHT PRIOR TO BEDTIME
  6. DILTIAZEM [Concomitant]
     Dosage: DAILY DOSE:180MG-FREQ:AT BEDTIME

REACTIONS (5)
  - ASTHENIA [None]
  - BLOOD PRESSURE ORTHOSTATIC DECREASED [None]
  - CONSTIPATION [None]
  - DIZZINESS [None]
  - NAUSEA [None]
